FAERS Safety Report 9378501 (Version 3)
Quarter: 2013Q3

REPORT INFORMATION
  Report Type: Report from Study
  Country: DE (occurrence: DE)
  Receive Date: 20130702
  Receipt Date: 20130715
  Transmission Date: 20140515
  Serious: Yes (Death, Hospitalization)
  Sender: FDA-Public Use
  Company Number: DE-ROCHE-1242802

PATIENT
  Age: 62 Year
  Sex: Male
  Weight: 58 kg

DRUGS (21)
  1. BEVACIZUMAB [Suspect]
     Indication: LUNG NEOPLASM MALIGNANT
     Route: 042
     Dates: start: 20130620, end: 20130706
  2. CISPLATIN [Suspect]
     Indication: LUNG NEOPLASM MALIGNANT
     Route: 042
     Dates: start: 20130620, end: 20130706
  3. PEMETREXED DISODIUM [Suspect]
     Indication: LUNG NEOPLASM MALIGNANT
     Route: 042
     Dates: start: 20130620, end: 20130706
  4. FOLSAN [Concomitant]
     Route: 048
     Dates: start: 20130626, end: 20130706
  5. VITAMIN B12 [Concomitant]
     Route: 030
  6. AMLODIPIN [Concomitant]
     Indication: HYPERTENSION
     Route: 048
  7. BISOPROLOL [Concomitant]
     Indication: HYPERTENSION
     Route: 048
     Dates: end: 20130706
  8. ACC [Concomitant]
     Route: 048
  9. CODEINE [Concomitant]
     Route: 048
  10. ZOMETA [Concomitant]
     Indication: METASTASES TO BONE
     Route: 042
  11. SPIRIVA [Concomitant]
     Indication: CHRONIC OBSTRUCTIVE PULMONARY DISEASE
     Route: 050
     Dates: start: 20130626, end: 20130706
  12. FORMOTEROL [Concomitant]
     Indication: CHRONIC OBSTRUCTIVE PULMONARY DISEASE
     Route: 050
  13. BERODUAL [Concomitant]
     Indication: CHRONIC OBSTRUCTIVE PULMONARY DISEASE
     Route: 050
  14. NOVALGIN [Concomitant]
     Indication: PAIN
     Route: 048
     Dates: start: 20130626, end: 20130706
  15. OXIS [Concomitant]
     Indication: CHRONIC OBSTRUCTIVE PULMONARY DISEASE
     Route: 050
     Dates: start: 20130626, end: 20130706
  16. TEPILTA [Concomitant]
     Route: 048
     Dates: start: 20130703, end: 20130706
  17. TARGIN [Concomitant]
     Indication: PAIN
     Dosage: DOSE: 10/5 MG.
     Route: 048
     Dates: start: 20130626, end: 20130706
  18. MERONEM [Concomitant]
     Indication: INFECTION
     Route: 048
     Dates: start: 20130701, end: 20130706
  19. DECORTIN [Concomitant]
     Route: 048
     Dates: start: 20130701, end: 20130706
  20. PANTOZOL (GERMANY) [Concomitant]
     Route: 048
     Dates: start: 20130626, end: 20130706
  21. TAVOR (GERMANY) [Concomitant]
     Route: 048
     Dates: start: 20130705, end: 20130706

REACTIONS (9)
  - Leukopenia [Fatal]
  - Renal failure [Fatal]
  - Thrombocytopenia [Fatal]
  - General physical health deterioration [Fatal]
  - Hypokalaemia [Fatal]
  - Dehydration [Unknown]
  - Vomiting [Unknown]
  - Nausea [Unknown]
  - Oral candidiasis [Unknown]
